FAERS Safety Report 4657941-X (Version None)
Quarter: 2005Q2

REPORT INFORMATION
  Report Type: 
  Country: None (occurrence: None)
  Receive Date: 20050510
  Receipt Date: 20050331
  Transmission Date: 20051028
  Serious: Yes (Death, Hospitalization)
  Sender: FDA-Public Use
  Company Number: 2005AP01965

PATIENT
  Age: 24289 Day
  Sex: Male

DRUGS (9)
  1. IRESSA [Suspect]
     Indication: NON-SMALL CELL LUNG CANCER
     Route: 048
     Dates: start: 20050311, end: 20050328
  2. IRESSA [Suspect]
     Indication: LUNG SQUAMOUS CELL CARCINOMA STAGE UNSPECIFIED
     Route: 048
     Dates: start: 20050311, end: 20050328
  3. AMINOMETHYLBENZOIC ACID [Concomitant]
     Indication: HAEMOPTYSIS
     Route: 042
     Dates: start: 20050324, end: 20050326
  4. AMINOMETHYLBENZOIC ACID [Concomitant]
     Route: 042
     Dates: start: 20050324, end: 20050326
  5. LEVOFLOXACIN [Concomitant]
     Indication: HAEMOPTYSIS
     Route: 042
     Dates: start: 20050324, end: 20050326
  6. DEXAMETHASONE [Concomitant]
     Indication: DYSPNOEA
     Route: 042
     Dates: start: 20050324, end: 20050326
  7. CECLOR [Concomitant]
     Indication: COUGH
     Route: 048
     Dates: start: 20050201, end: 20050305
  8. CECLOR [Concomitant]
     Route: 048
     Dates: start: 20050307, end: 20050313
  9. ZHEN QI FU ZHEN [Concomitant]
     Dates: start: 20050307, end: 20050311

REACTIONS (10)
  - ALANINE AMINOTRANSFERASE INCREASED [None]
  - ASPARTATE AMINOTRANSFERASE INCREASED [None]
  - BLOOD ALKALINE PHOSPHATASE INCREASED [None]
  - BLOOD BILIRUBIN INCREASED [None]
  - BLOOD LACTATE DEHYDROGENASE INCREASED [None]
  - DYSPNOEA [None]
  - GAMMA-GLUTAMYLTRANSFERASE INCREASED [None]
  - HEPATIC FUNCTION ABNORMAL [None]
  - HEPATITIS B SURFACE ANTIGEN POSITIVE [None]
  - HEPATOMEGALY [None]
